FAERS Safety Report 17021653 (Version 1)
Quarter: 2019Q4

REPORT INFORMATION
  Report Type: Spontaneous
  Country: US (occurrence: US)
  Receive Date: 20191104
  Receipt Date: 20191104
  Transmission Date: 20200122
  Serious: Yes (Other)
  Sender: FDA-Public Use
  Company Number: None

PATIENT
  Age: 1 Day

DRUGS (1)
  1. ERYTHROMYCIN EYE OINTMENT [Suspect]
     Active Substance: ERYTHROMYCIN
     Dosage: ?          OTHER FREQUENCY:ONCE;?
     Route: 031

REACTIONS (1)
  - Conjunctivitis [None]

NARRATIVE: CASE EVENT DATE: 20191031
